FAERS Safety Report 9012072 (Version 1)
Quarter: 2012Q4

REPORT INFORMATION
  Report Type: Spontaneous
  Country: DK (occurrence: None)
  Receive Date: 20121228
  Receipt Date: 20121228
  Transmission Date: 20130627
  Serious: Yes (Other)
  Sender: FDA-Public Use
  Company Number: 2012MA014285

PATIENT
  Age: 20 Year
  Sex: Female

DRUGS (4)
  1. IBUPROFEN [Suspect]
     Indication: DRUG USE FOR UNKNOWN INDICATION
     Dates: start: 20121205
  2. METRONIDAZOLE [Concomitant]
  3. LEVONORGESTREL [Concomitant]
  4. CHLORPHENAMINE [Concomitant]

REACTIONS (3)
  - Skin reaction [None]
  - Pruritus [None]
  - Rash [None]
